FAERS Safety Report 18139606 (Version 2)
Quarter: 2020Q3

REPORT INFORMATION
  Report Type: Spontaneous
  Country: US (occurrence: US)
  Receive Date: 20200812
  Receipt Date: 20200826
  Transmission Date: 20201103
  Serious: No
  Sender: FDA-Public Use
  Company Number: US-PFIZER INC-2020309521

PATIENT
  Age: 66 Year
  Sex: Female

DRUGS (3)
  1. LYRICA [Suspect]
     Active Substance: PREGABALIN
     Indication: NEURALGIA
     Dosage: 250 MG, DAILY (INCREASED LYRICA TO 50/50/50/100 MG)
     Route: 048
     Dates: start: 20200713
  2. PREGABALIN. [Suspect]
     Active Substance: PREGABALIN
     Dosage: 200 MG, DAILY (INCREASE TO 50MG/50MG/100MG)
     Dates: start: 20200709
  3. PREGABALIN. [Suspect]
     Active Substance: PREGABALIN
     Indication: NEURALGIA
     Dosage: 50 MG, 3X/DAY (50MG/50MG/50MG)
     Dates: start: 20200707

REACTIONS (1)
  - Drug ineffective [Unknown]

NARRATIVE: CASE EVENT DATE: 20200709
